FAERS Safety Report 4718808-1 (Version None)
Quarter: 2005Q3

REPORT INFORMATION
  Report Type: 
  Country: None (occurrence: None)
  Receive Date: 20050719
  Receipt Date: 20050705
  Transmission Date: 20060218
  Serious: Yes (Hospitalization, Other)
  Sender: FDA-Public Use
  Company Number: 2005098043

PATIENT
  Age: 70 Year
  Sex: Female
  Weight: 56.6996 kg

DRUGS (2)
  1. DILANTIN KAPSEAL [Suspect]
     Indication: CONVULSION
     Dosage: 300 MG (300 MG, 1 IN 1 D) ORAL
     Route: 048
     Dates: start: 20041001
  2. DECADRON [Concomitant]

REACTIONS (14)
  - ABNORMAL BEHAVIOUR [None]
  - AMNESIA [None]
  - ANTICONVULSANT DRUG LEVEL ABOVE THERAPEUTIC [None]
  - ANTICONVULSANT DRUG LEVEL DECREASED [None]
  - ANTICONVULSANT TOXICITY [None]
  - CONFUSIONAL STATE [None]
  - CONVULSION [None]
  - EATING DISORDER [None]
  - FEELING ABNORMAL [None]
  - GLIOBLASTOMA MULTIFORME [None]
  - MALAISE [None]
  - NEOPLASM RECURRENCE [None]
  - SOMNOLENCE [None]
  - STRESS [None]
